FAERS Safety Report 15332073 (Version 1)
Quarter: 2018Q3

REPORT INFORMATION
  Report Type: Spontaneous
  Country: US (occurrence: US)
  Receive Date: 20180829
  Receipt Date: 20180829
  Transmission Date: 20181010
  Serious: Yes (Life-Threatening, Hospitalization, Other)
  Sender: FDA-Public Use
  Company Number: US-FRESENIUS KABI-FK201809097

PATIENT
  Age: 31 Year
  Sex: Male

DRUGS (3)
  1. HEPARIN (MANUFACTURER UNKNOWN) [Suspect]
     Active Substance: HEPARIN SODIUM
     Indication: PRODUCT USED FOR UNKNOWN INDICATION
  2. HEPARIN (MANUFACTURER UNKNOWN) [Suspect]
     Active Substance: HEPARIN SODIUM
     Indication: PROPHYLAXIS
     Dosage: UNKNOWN
     Route: 058
  3. HEPARIN (MANUFACTURER UNKNOWN) [Suspect]
     Active Substance: HEPARIN SODIUM
     Indication: VENOUS THROMBOSIS
     Dosage: UNKNOWN
     Route: 042

REACTIONS (8)
  - Catheter site thrombosis [Unknown]
  - Post procedural haemorrhage [Unknown]
  - Condition aggravated [Unknown]
  - Heparin-induced thrombocytopenia [Recovered/Resolved]
  - Cardiac failure congestive [Unknown]
  - Platelet count decreased [Recovering/Resolving]
  - Venous thrombosis [Unknown]
  - Peripheral artery occlusion [Unknown]
